FAERS Safety Report 5264237-4 (Version None)
Quarter: 2007Q1

REPORT INFORMATION
  Report Type: 
  Country: None (occurrence: None)
  Receive Date: 20070313
  Receipt Date: 20070301
  Transmission Date: 20070707
  Serious: Yes (Hospitalization)
  Sender: FDA-Public Use
  Company Number: JP-PFIZER INC-2007017176

PATIENT
  Age: 63 Year
  Sex: Female

DRUGS (1)
  1. AZULFIDINE EN-TABS [Suspect]
     Indication: RHEUMATOID ARTHRITIS
     Dosage: DAILY DOSE:500MG-FREQ:DAILY
     Route: 048
     Dates: start: 20070112, end: 20070212

REACTIONS (3)
  - BLOOD DISORDER [None]
  - LIVER DISORDER [None]
  - RASH [None]
